FAERS Safety Report 5566021-0 (Version None)
Quarter: 2007Q4

REPORT INFORMATION
  Report Type: 
  Country: None (occurrence: None)
  Receive Date: 20071219
  Receipt Date: 20071213
  Transmission Date: 20080405
  Serious: Yes (Other)
  Sender: FDA-Public Use
  Company Number: AU-WYE-G00707907

PATIENT
  Sex: Female
  Weight: 62 kg

DRUGS (1)
  1. EFFEXOR XR [Suspect]
     Indication: DEPRESSION
     Route: 048
     Dates: start: 20071001

REACTIONS (3)
  - ABNORMAL LABOUR [None]
  - DRUG EXPOSURE DURING PREGNANCY [None]
  - UTERINE INJURY [None]
